FAERS Safety Report 4338299-2 (Version None)
Quarter: 2004Q2

REPORT INFORMATION
  Report Type: 
  Country: None (occurrence: None)
  Receive Date: 20040413
  Receipt Date: 20040413
  Transmission Date: 20050107
  Serious: Yes (Life-Threatening, Disabling, Other)
  Sender: FDA-Public Use
  Company Number: None

PATIENT
  Age: 57 Year
  Sex: Male
  Weight: 165.5629 kg

DRUGS (9)
  1. GLUCOPHAGE [Suspect]
     Indication: DIABETES MELLITUS NON-INSULIN-DEPENDENT
     Dosage: 1000 MG ORAL
     Route: 048
  2. LASIX [Concomitant]
  3. VERAPAMIL [Concomitant]
  4. DIOVAN W/ HCL [Concomitant]
  5. TRICOR [Concomitant]
  6. PRAVACHOL [Concomitant]
  7. AMARYL [Concomitant]
  8. ACTOS [Concomitant]
  9. DIGOXIN [Concomitant]

REACTIONS (3)
  - BLOOD CREATININE INCREASED [None]
  - CARDIAC DISORDER [None]
  - WEIGHT INCREASED [None]
